FAERS Safety Report 12041657 (Version 1)
Quarter: 2016Q1

REPORT INFORMATION
  Report Type: Spontaneous
  Country: BR (occurrence: BR)
  Receive Date: 20160208
  Receipt Date: 20160208
  Transmission Date: 20160526
  Serious: Yes (Other)
  Sender: FDA-Public Use
  Company Number: BR-JNJFOC-20160204316

PATIENT
  Sex: Female

DRUGS (1)
  1. LEVAQUIN [Suspect]
     Active Substance: LEVOFLOXACIN
     Indication: SWELLING
     Route: 065

REACTIONS (5)
  - Abasia [Unknown]
  - Product use issue [Unknown]
  - Off label use [Unknown]
  - Limb discomfort [Unknown]
  - Monoplegia [Unknown]
